FAERS Safety Report 8219697-3 (Version None)
Quarter: 2012Q1

REPORT INFORMATION
  Report Type: 
  Country: None (occurrence: None)
  Receive Date: 20120319
  Receipt Date: 20120312
  Transmission Date: 20120608
  Serious: Yes (Other)
  Sender: FDA-Public Use
  Company Number: US-ROCHE-1015921

PATIENT
  Sex: Male
  Weight: 77.18 kg

DRUGS (7)
  1. LIALDA [Concomitant]
  2. ACCUTANE [Suspect]
     Indication: ACNE
     Route: 065
     Dates: start: 20010719, end: 20020117
  3. PREDNISONE [Concomitant]
  4. FOLIC ACID [Concomitant]
  5. AZATHIOPRINE [Concomitant]
  6. ASACOL [Concomitant]
  7. ADDERALL 5 [Concomitant]

REACTIONS (3)
  - DEPRESSION [None]
  - COLITIS ULCERATIVE [None]
  - INJURY [None]
